FAERS Safety Report 19322532 (Version 5)
Quarter: 2022Q4

REPORT INFORMATION
  Report Type: Spontaneous
  Country: DE (occurrence: None)
  Receive Date: 20210528
  Receipt Date: 20221206
  Transmission Date: 20230112
  Serious: Yes (Hospitalization, Other)
  Sender: FDA-Public Use
  Company Number: DE-ROCHE-2835351

PATIENT
  Age: 34 Year
  Sex: Female
  Weight: 54 kg

DRUGS (11)
  1. OCREVUS [Suspect]
     Active Substance: OCRELIZUMAB
     Indication: Relapsing multiple sclerosis
     Route: 042
     Dates: start: 20190127
  2. OCREVUS [Suspect]
     Active Substance: OCRELIZUMAB
     Dosage: ON /FEB/2019, NEXT DOSE
     Route: 042
     Dates: start: 20210127
  3. OCREVUS [Suspect]
     Active Substance: OCRELIZUMAB
     Route: 042
     Dates: start: 20210127
  4. OCREVUS [Suspect]
     Active Substance: OCRELIZUMAB
     Route: 065
     Dates: start: 201902
  5. CHOLECALCIFEROL [Concomitant]
     Active Substance: CHOLECALCIFEROL
     Indication: Vitamin D deficiency
     Dosage: IN EXCHANGE WITH VIGANTOL, 1000-2000 IU EVERY 1-2 DAYS
  6. VIGANTOL [Concomitant]
     Indication: Vitamin D deficiency
     Dosage: IN EXCHANGE WITH DEKRISTOL, 1000-2000 IU EVERY 1-2 DAYS
  7. VITAMIN K 2 [Concomitant]
     Dosage: 200-300 MICROGM 1-2 TIMES PER WEEK
  8. CALCIUM [Concomitant]
     Active Substance: CALCIUM
     Dosage: 1-2 TIMES PER WEEK
  9. TINZAPARIN [Concomitant]
     Active Substance: TINZAPARIN
     Indication: Thrombosis prophylaxis
     Dosage: DOSE: 3500 IU
     Route: 058
     Dates: start: 20210505, end: 20210520
  10. CHOLECALCIFEROL [Concomitant]
     Active Substance: CHOLECALCIFEROL
     Dosage: DOSE: 1000 IU
  11. FINGOLIMOD [Concomitant]
     Active Substance: FINGOLIMOD

REACTIONS (8)
  - COVID-19 [Recovered/Resolved]
  - Meningococcal infection [Unknown]
  - Neisseria infection [Recovered/Resolved]
  - Streptococcal infection [Unknown]
  - Haemophilus infection [Recovered/Resolved]
  - Pneumonia [Recovered/Resolved]
  - Bronchitis [Recovered/Resolved]
  - CD4 lymphocytes decreased [Not Recovered/Not Resolved]

NARRATIVE: CASE EVENT DATE: 20210412
